FAERS Safety Report 8044605-8 (Version None)
Quarter: 2012Q1

REPORT INFORMATION
  Report Type: 
  Country: None (occurrence: None)
  Receive Date: 20120113
  Receipt Date: 20120113
  Transmission Date: 20120608
  Serious: No
  Sender: FDA-Public Use
  Company Number: None

PATIENT
  Age: 59 Year
  Sex: Female
  Weight: 124.73 kg

DRUGS (1)
  1. LEVETIRACETAM [Suspect]
     Indication: NEURALGIA
     Dosage: 1000 MG
     Route: 048
     Dates: start: 20110327, end: 20110614

REACTIONS (4)
  - NEURALGIA [None]
  - PRODUCT SUBSTITUTION ISSUE [None]
  - CARPAL TUNNEL SYNDROME [None]
  - ACTIVITIES OF DAILY LIVING IMPAIRED [None]
